FAERS Safety Report 19630187 (Version 10)
Quarter: 2025Q1

REPORT INFORMATION
  Report Type: Spontaneous
  Country: US (occurrence: US)
  Receive Date: 20210728
  Receipt Date: 20250128
  Transmission Date: 20250409
  Serious: Yes (Life-Threatening, Hospitalization, Other)
  Sender: PFIZER
  Company Number: US-PFIZER INC-2021900860

PATIENT
  Age: 78 Year
  Sex: Female

DRUGS (1)
  1. XELJANZ XR [Suspect]
     Active Substance: TOFACITINIB CITRATE
     Indication: Rheumatoid arthritis
     Dosage: 11 MG, 1X/DAY
     Route: 048
     Dates: start: 202107

REACTIONS (15)
  - Near death experience [Unknown]
  - Cardiac dysfunction [Unknown]
  - Pulmonary oedema [Unknown]
  - Asthenia [Unknown]
  - Cerebrovascular accident [Unknown]
  - Rheumatoid arthritis [Unknown]
  - Atrial fibrillation [Unknown]
  - Cataract [Unknown]
  - Emotional distress [Unknown]
  - Illness [Unknown]
  - Hand deformity [Unknown]
  - Asthenia [Unknown]
  - Bedridden [Unknown]
  - Cardiac disorder [Unknown]
  - Renal disorder [Unknown]
